FAERS Safety Report 8998675 (Version 1)
Quarter: 2013Q1

REPORT INFORMATION
  Report Type: Spontaneous
  Country: US (occurrence: US)
  Receive Date: 20130103
  Receipt Date: 20130103
  Transmission Date: 20140127
  Serious: Yes (Other)
  Sender: FDA-Public Use
  Company Number: US-JNJFOC-20130100255

PATIENT
  Age: 70 Year
  Sex: Male
  Weight: 86.18 kg

DRUGS (4)
  1. XARELTO [Suspect]
     Indication: THROMBOSIS PROPHYLAXIS
     Route: 048
     Dates: start: 20121027, end: 20121103
  2. XARELTO [Suspect]
     Indication: THROMBOSIS PROPHYLAXIS
     Route: 048
     Dates: start: 20121027, end: 20121103
  3. PERCOCET [Concomitant]
     Indication: PAIN
     Dosage: DOSE:10/325 START DATE: 26-OCT
     Route: 065
  4. LORTAB [Concomitant]
     Indication: PAIN
     Dosage: DOSE: 10/500 START DATE: 26-OCT
     Route: 065

REACTIONS (1)
  - Dyspnoea [Recovered/Resolved]
